FAERS Safety Report 8739411 (Version 5)
Quarter: 2013Q1

REPORT INFORMATION
  Report Type: Report from Study
  Country: AU (occurrence: AU)
  Receive Date: 20120823
  Receipt Date: 20130124
  Transmission Date: 20140127
  Serious: Yes (Other)
  Sender: FDA-Public Use
  Company Number: AU-JNJFOC-20120810698

PATIENT
  Sex: Male

DRUGS (11)
  1. STELARA [Suspect]
     Indication: PSORIASIS
     Route: 058
     Dates: start: 20110329
  2. STELARA [Suspect]
     Indication: PSORIASIS
     Route: 058
     Dates: start: 20110628
  3. STELARA [Suspect]
     Indication: PSORIASIS
     Route: 058
     Dates: start: 20110301
  4. STELARA [Suspect]
     Indication: PSORIASIS
     Route: 058
     Dates: start: 20110920
  5. STELARA [Suspect]
     Indication: PSORIASIS
     Route: 058
     Dates: start: 20111209
  6. STELARA [Suspect]
     Indication: PSORIASIS
     Route: 058
     Dates: start: 20120229
  7. STELARA [Suspect]
     Indication: PSORIASIS
     Route: 058
     Dates: start: 20120517
  8. STELARA [Suspect]
     Indication: PSORIASIS
     Route: 058
     Dates: start: 20120814
  9. STELARA [Suspect]
     Indication: PSORIASIS
     Route: 058
     Dates: start: 20121101
  10. PREDNISONE [Concomitant]
     Indication: ARTHRALGIA
  11. METHOTREXATE [Concomitant]
     Indication: ARTHRALGIA

REACTIONS (4)
  - Systemic lupus erythematosus [Unknown]
  - Antibody test positive [Unknown]
  - Psoriasis [Not Recovered/Not Resolved]
  - Arthralgia [Unknown]
